FAERS Safety Report 5113294-4 (Version None)
Quarter: 2006Q3

REPORT INFORMATION
  Report Type: 
  Country: None (occurrence: None)
  Receive Date: 20060920
  Receipt Date: 20060905
  Transmission Date: 20061208
  Serious: Yes (Hospitalization, Other)
  Sender: FDA-Public Use
  Company Number: USA050188072

PATIENT
  Age: 51 Year
  Sex: Female
  Weight: 75 kg

DRUGS (11)
  1. HUMATROPE [Suspect]
     Indication: GROWTH HORMONE DEFICIENCY
     Dates: start: 20040810, end: 20060301
  2. HUMATROPE [Suspect]
     Indication: GROWTH HORMONE DEFICIENCY
     Dates: start: 20040601
  3. HUMATROPE [Suspect]
     Indication: GROWTH HORMONE DEFICIENCY
     Dates: start: 20060815
  4. LASIX [Concomitant]
  5. XANAX /USA/ (ALPRAZOLAM) [Concomitant]
  6. K-DUR 10 [Concomitant]
  7. THYROID TAB [Concomitant]
  8. SYNTHROID [Concomitant]
  9. ALDACTONE [Concomitant]
  10. HYZAAR [Concomitant]
  11. LEXAPRO (ESCITALOPRAM OXALATE) [Concomitant]

REACTIONS (16)
  - BLOOD GROWTH HORMONE DECREASED [None]
  - DEHYDRATION [None]
  - FATIGUE [None]
  - HEADACHE [None]
  - HYPERHIDROSIS [None]
  - HYPOAESTHESIA [None]
  - MENOPAUSE [None]
  - MYALGIA [None]
  - NAUSEA [None]
  - OEDEMA PERIPHERAL [None]
  - PAIN IN EXTREMITY [None]
  - SWELLING [None]
  - SWELLING FACE [None]
  - SYNCOPE [None]
  - THYROID DISORDER [None]
  - WEIGHT INCREASED [None]
